FAERS Safety Report 7639921 (Version 2)
Quarter: 2016Q3

REPORT INFORMATION
  Report Type: Spontaneous
  Country: US (occurrence: US)
  Receive Date: 20101026
  Receipt Date: 20160928
  Transmission Date: 20161109
  Serious: No
  Sender: FDA-Public Use
  Company Number: US-PFIZER INC-2010131885

PATIENT
  Age: 61 Year
  Sex: Female
  Weight: 54.42 kg

DRUGS (2)
  1. LYRICA [Suspect]
     Active Substance: PREGABALIN
     Indication: NEURALGIA
     Dosage: UNK
  2. LYRICA [Suspect]
     Active Substance: PREGABALIN
     Indication: FIBROMYALGIA
     Dosage: 300 MG, 2X/DAY

REACTIONS (3)
  - Malaise [Unknown]
  - Condition aggravated [Recovering/Resolving]
  - Gastrooesophageal reflux disease [Recovering/Resolving]
